FAERS Safety Report 11050765 (Version 1)
Quarter: 2015Q2

REPORT INFORMATION
  Report Type: Spontaneous
  Country: US (occurrence: US)
  Receive Date: 20150421
  Receipt Date: 20150421
  Transmission Date: 20150821
  Serious: No
  Sender: FDA-Public Use
  Company Number: US-BIOGENIDEC-2015BI049783

PATIENT
  Sex: Female
  Weight: 54 kg

DRUGS (6)
  1. VITAMIN C [Concomitant]
     Active Substance: ASCORBIC ACID
  2. VITAMIN D [Concomitant]
     Active Substance: CHOLECALCIFEROL
  3. VALSARTAN. [Concomitant]
     Active Substance: VALSARTAN
  4. TECFIDERA [Suspect]
     Active Substance: DIMETHYL FUMARATE
     Indication: PRODUCT USED FOR UNKNOWN INDICATION
     Dates: end: 20150102
  5. FLAXSEED [Concomitant]
     Active Substance: FLAX SEED
  6. AMPYRA [Concomitant]
     Active Substance: DALFAMPRIDINE
     Indication: GAIT DISTURBANCE
     Route: 048
     Dates: start: 201412, end: 201501

REACTIONS (2)
  - Immunodeficiency [Unknown]
  - Memory impairment [Recovered/Resolved]
